FAERS Safety Report 6656953-4 (Version None)
Quarter: 2010Q1

REPORT INFORMATION
  Report Type: 
  Country: None (occurrence: None)
  Receive Date: 20100329
  Receipt Date: 20100329
  Transmission Date: 20100710
  Serious: No
  Sender: FDA-Public Use
  Company Number: None

PATIENT
  Age: 69 Year
  Sex: Female

DRUGS (7)
  1. HYDRALAZINE HCL [Suspect]
     Dates: start: 20080826, end: 20081224
  2. COUMADIN [Concomitant]
  3. COZAAR [Concomitant]
  4. METOPROLOL [Concomitant]
  5. KLOR-CON [Concomitant]
  6. HYDROCHLOROTHIAZIDE [Concomitant]
  7. DOXYCYCLINE [Concomitant]

REACTIONS (2)
  - ANTIBODY TEST POSITIVE [None]
  - HEPATITIS TOXIC [None]
